FAERS Safety Report 16598111 (Version 1)
Quarter: 2019Q3

REPORT INFORMATION
  Report Type: Spontaneous
  Country: CN (occurrence: CN)
  Receive Date: 20190719
  Receipt Date: 20190719
  Transmission Date: 20191004
  Serious: Yes (Hospitalization)
  Sender: FDA-Public Use
  Company Number: CN-PFIZER INC-2019303413

PATIENT
  Age: 37 Year
  Sex: Male
  Weight: 70 kg

DRUGS (2)
  1. TAZOCIN [Suspect]
     Active Substance: PIPERACILLIN SODIUM\TAZOBACTAM SODIUM
     Indication: INFECTION
     Dosage: 4.5 G, THREE TIMES A DAY [EVERY 8 HOURS (Q8H)]
     Route: 041
     Dates: start: 20190627, end: 20190705
  2. SODIUM CHLORIDE. [Concomitant]
     Active Substance: SODIUM CHLORIDE
     Indication: VEHICLE SOLUTION USE
     Dosage: 100 ML, THREE TIMES A DAY [EVERY 8 HOURS (Q8H)]
     Route: 041
     Dates: start: 20190627, end: 20190705

REACTIONS (3)
  - Drug eruption [Recovered/Resolved]
  - Infusion related reaction [Unknown]
  - Arthralgia [Recovered/Resolved]

NARRATIVE: CASE EVENT DATE: 20190703
